FAERS Safety Report 6813680-8 (Version None)
Quarter: 2010Q3

REPORT INFORMATION
  Report Type: 
  Country: None (occurrence: None)
  Receive Date: 20100701
  Receipt Date: 20100622
  Transmission Date: 20110219
  Serious: Yes (Other)
  Sender: FDA-Public Use
  Company Number: NZ-BAXTER-2010BH016798

PATIENT

DRUGS (4)
  1. TISSEEL VH KIT [Suspect]
     Indication: PTERYGIUM OPERATION
     Route: 061
     Dates: start: 20060101, end: 20060101
  2. TISSEEL VH KIT [Suspect]
     Indication: OFF LABEL USE
     Route: 061
     Dates: start: 20060101, end: 20060101
  3. AMETHOCAINE [Concomitant]
     Indication: LOCAL ANAESTHESIA
     Route: 061
     Dates: start: 20060101, end: 20060101
  4. LIGNOCAINE HYDROCHLORIDE AND ADRENALINE [Concomitant]
     Indication: LOCAL ANAESTHESIA
     Route: 057
     Dates: start: 20060101, end: 20060101

REACTIONS (2)
  - GRAFT COMPLICATION [None]
  - OFF LABEL USE [None]
